FAERS Safety Report 20307116 (Version 1)
Quarter: 2022Q1

REPORT INFORMATION
  Report Type: Report from Study
  Country: BR (occurrence: BR)
  Receive Date: 20220107
  Receipt Date: 20220107
  Transmission Date: 20220423
  Serious: Yes (Other)
  Sender: FDA-Public Use
  Company Number: BR-JNJFOC-20220106015

PATIENT
  Sex: Female
  Weight: 70 kg

DRUGS (1)
  1. INFLIXIMAB [Suspect]
     Active Substance: INFLIXIMAB
     Indication: Rheumatoid arthritis
     Dosage: 100 MG VIAL
     Route: 042
     Dates: start: 20170914, end: 2021

REACTIONS (1)
  - Systemic lupus erythematosus [Unknown]
